FAERS Safety Report 12773307 (Version 1)
Quarter: 2016Q3

REPORT INFORMATION
  Report Type: Spontaneous
  Country: US (occurrence: US)
  Receive Date: 20160922
  Receipt Date: 20160922
  Transmission Date: 20161109
  Serious: No
  Sender: FDA-Public Use
  Company Number: US-BANPHARM-20164699

PATIENT
  Age: 94 Year
  Sex: Female
  Weight: 61.24 kg

DRUGS (1)
  1. ZYRTEC [Suspect]
     Active Substance: CETIRIZINE HYDROCHLORIDE
     Indication: NASOPHARYNGITIS
     Dosage: 1 DF, QHS,
     Route: 048

REACTIONS (3)
  - Epistaxis [Unknown]
  - Therapeutic response unexpected [Unknown]
  - Somnolence [Unknown]
